FAERS Safety Report 10087463 (Version 1)
Quarter: 2014Q2

REPORT INFORMATION
  Report Type: Spontaneous
  Country: US (occurrence: US)
  Receive Date: 20140418
  Receipt Date: 20140418
  Transmission Date: 20141212
  Serious: No
  Sender: FDA-Public Use
  Company Number: US-PURDUE-USA-2014-0112890

PATIENT
  Age: 53 Year
  Sex: Female

DRUGS (4)
  1. OXYCONTIN (NDA 22-272) [Suspect]
     Indication: SPINAL COLUMN STENOSIS
     Dosage: 60 MG, Q12H
     Route: 048
     Dates: end: 20140406
  2. OXYCONTIN (NDA 22-272) [Suspect]
     Indication: SPINAL OSTEOARTHRITIS
  3. OXYCONTIN (NDA 22-272) [Suspect]
     Indication: SPINAL OSTEOARTHRITIS
  4. HYDROMORPHONE HCL (SIMILAR TO 19-892) [Concomitant]
     Indication: PRODUCT USED FOR UNKNOWN INDICATION
     Dosage: 4 MG, DAILY 1-2 TABLETS PER DAY
     Route: 048
     Dates: end: 20140409

REACTIONS (3)
  - Drug withdrawal syndrome [Not Recovered/Not Resolved]
  - Muscle spasms [Not Recovered/Not Resolved]
  - Dizziness [Not Recovered/Not Resolved]
